FAERS Safety Report 7274343-0 (Version None)
Quarter: 2011Q1

REPORT INFORMATION
  Report Type: 
  Country: None (occurrence: None)
  Receive Date: 20110131
  Receipt Date: 20110131
  Transmission Date: 20110831
  Serious: Yes (Other)
  Sender: FDA-Public Use
  Company Number: None

PATIENT
  Age: 63 Year
  Sex: Female
  Weight: 53.5244 kg

DRUGS (1)
  1. CARAC [Suspect]
     Indication: ACTINIC KERATOSIS
     Dosage: TO COVER BRIDGE OF NOSE NIGHTLY CUTANEOUS
     Route: 003
     Dates: start: 20110124, end: 20110124

REACTIONS (8)
  - CHILLS [None]
  - NIGHTMARE [None]
  - PAIN IN JAW [None]
  - AGITATION [None]
  - POLLAKIURIA [None]
  - INITIAL INSOMNIA [None]
  - ABDOMINAL PAIN UPPER [None]
  - EAR PAIN [None]
